FAERS Safety Report 5443251-X (Version None)
Quarter: 2007Q3

REPORT INFORMATION
  Report Type: 
  Country: None (occurrence: None)
  Receive Date: 20070831
  Receipt Date: 20070831
  Transmission Date: 20080115
  Serious: Yes (Hospitalization)
  Sender: FDA-Public Use
  Company Number: None

PATIENT
  Age: 65 Year
  Sex: Female
  Weight: 87.0906 kg

DRUGS (3)
  1. BEVACIZUMAB 25MG/ML GENENTECH [Suspect]
     Indication: BREAST CANCER
     Dosage: 15MG/KG Q3WKS (IV)
     Route: 042
     Dates: start: 20060914, end: 20070412
  2. CYCLOPHOSPHAMIDE [Concomitant]
  3. METHOTREXATE [Concomitant]

REACTIONS (7)
  - ATRIAL FIBRILLATION [None]
  - BRONCHITIS [None]
  - LARYNGITIS [None]
  - MENTAL STATUS CHANGES [None]
  - SEPSIS [None]
  - SINUSITIS [None]
  - VOMITING [None]
